FAERS Safety Report 11599367 (Version 2)
Quarter: 2016Q3

REPORT INFORMATION
  Report Type: Report from Study
  Country: JP (occurrence: JP)
  Receive Date: 20151006
  Receipt Date: 20160923
  Transmission Date: 20161109
  Serious: Yes (Life-Threatening, Hospitalization)
  Sender: FDA-Public Use
  Company Number: JP-SA-2015SA152194

PATIENT
  Age: 12 Year
  Sex: Male
  Weight: 31.4 kg

DRUGS (20)
  1. NEORAL [Concomitant]
     Active Substance: CYCLOSPORINE
     Indication: PROPHYLAXIS
     Dates: start: 20140207, end: 20140429
  2. LASTET [Concomitant]
     Active Substance: ETOPOSIDE
     Indication: PREMEDICATION
     Dates: start: 20130930, end: 20130930
  3. SOL-MELCORT [Concomitant]
     Active Substance: METHYLPREDNISOLONE SODIUM SUCCINATE
     Indication: PROPHYLAXIS
     Dates: start: 20130819, end: 20131110
  4. LASTET [Concomitant]
     Active Substance: ETOPOSIDE
     Indication: PREMEDICATION
     Dates: start: 20130822, end: 20130822
  5. ALKERAN [Concomitant]
     Active Substance: MELPHALAN
     Indication: PREMEDICATION
     Dates: start: 20130823, end: 20130824
  6. NEUTROGIN [Concomitant]
     Active Substance: LENOGRASTIM
     Indication: AGRANULOCYTOSIS
     Dates: start: 20130819, end: 20131028
  7. HEPARIN [Concomitant]
     Active Substance: HEPARIN SODIUM
     Indication: PROPHYLAXIS
     Dates: start: 20130818, end: 20131101
  8. DENOSINE [Concomitant]
     Active Substance: GANCICLOVIR
     Indication: ANTIVIRAL PROPHYLAXIS
     Dates: start: 20131003, end: 20131115
  9. FLUDARA [Concomitant]
     Active Substance: FLUDARABINE PHOSPHATE
     Indication: PREMEDICATION
     Dates: start: 20130928, end: 20131002
  10. STRONG NEO-MINOPHAGEN C [Concomitant]
     Active Substance: AMMONIUM GLYCYRRHIZATE\CYSTEINE HYDROCHLORIDE\GLYCINE
     Indication: LIVER DISORDER
     Dates: start: 20130918, end: 20131105
  11. FUNGUARD [Concomitant]
     Active Substance: MICAFUNGIN SODIUM
     Indication: ANTIFUNGAL PROPHYLAXIS
     Dates: start: 20130819, end: 20131021
  12. THYMOGLOBULINE [Suspect]
     Active Substance: LAPINE T-LYMPHOCYTE IMMUNE GLOBULIN
     Indication: BONE MARROW CONDITIONING REGIMEN
     Route: 042
     Dates: start: 20130819, end: 20130819
  13. PROGRAF [Suspect]
     Active Substance: TACROLIMUS\TACROLIMUS ANHYDROUS
     Indication: PROPHYLAXIS AGAINST GRAFT VERSUS HOST DISEASE
     Route: 065
     Dates: start: 20130825, end: 20140207
  14. FLUDARA [Concomitant]
     Active Substance: FLUDARABINE PHOSPHATE
     Indication: PREMEDICATION
     Dates: start: 20130820, end: 20130824
  15. VICCLOX [Concomitant]
     Active Substance: ACYCLOVIR SODIUM
     Indication: ANTIVIRAL PROPHYLAXIS
     Dates: start: 20130818, end: 20131002
  16. PILENZEL [Concomitant]
     Indication: PROPHYLAXIS
     Dates: start: 20130818, end: 20131110
  17. ENDOXAN [Concomitant]
     Active Substance: CYCLOPHOSPHAMIDE
     Indication: PREMEDICATION
     Dates: start: 20131001, end: 20131002
  18. THYMOGLOBULINE [Suspect]
     Active Substance: LAPINE T-LYMPHOCYTE IMMUNE GLOBULIN
     Indication: BONE MARROW CONDITIONING REGIMEN
     Route: 042
     Dates: start: 20130928, end: 20130928
  19. THYMOGLOBULINE [Suspect]
     Active Substance: LAPINE T-LYMPHOCYTE IMMUNE GLOBULIN
     Indication: BONE MARROW CONDITIONING REGIMEN
     Route: 042
     Dates: start: 20131002, end: 20131002
  20. LIPLE [Concomitant]
     Active Substance: ALPROSTADIL
     Indication: PROPHYLAXIS
     Dates: start: 20130818, end: 20131027

REACTIONS (4)
  - Staphylococcal sepsis [Recovered/Resolved]
  - Diabetic ketoacidosis [Recovered/Resolved]
  - Hyperglycaemia [Recovered/Resolved]
  - Engraft failure [Recovered/Resolved]

NARRATIVE: CASE EVENT DATE: 20130905
